FAERS Safety Report 8492999-1 (Version None)
Quarter: 2012Q3

REPORT INFORMATION
  Report Type: 
  Country: None (occurrence: None)
  Receive Date: 20120706
  Receipt Date: 20120627
  Transmission Date: 20120928
  Serious: Yes (Hospitalization, Other)
  Sender: FDA-Public Use
  Company Number: US-ASTRAZENECA-2011SE42144

PATIENT
  Age: 50 Year
  Sex: Male

DRUGS (15)
  1. ZETIA [Concomitant]
     Indication: BLOOD CHOLESTEROL INCREASED
  2. ZOLOFT [Concomitant]
     Indication: ANXIETY
     Dosage: 1.5 TABLETS (150 MG) IN THE MORNING AND 1.5 TABLETS (150 MG) AT NIGHT
  3. PREVACID [Concomitant]
     Indication: HYPERCHLORHYDRIA
  4. ASPIRIN [Concomitant]
     Indication: ANTICOAGULANT THERAPY
  5. ZOLOFT [Concomitant]
     Indication: DEPRESSION
     Dosage: 1.5 TABLETS (150 MG) IN THE MORNING AND 1.5 TABLETS (150 MG) AT NIGHT
  6. KLONOPIN [Concomitant]
     Indication: ANXIETY
     Dosage: 2 TABLETS (1 MG) IN THE MORNING AND 2 TABLETS (1 MG) AT NIGHT
  7. LOVAZA [Concomitant]
     Indication: BLOOD TRIGLYCERIDES ABNORMAL
  8. CRESTOR [Suspect]
     Indication: BLOOD CHOLESTEROL INCREASED
     Route: 048
  9. TOPROL-XL [Suspect]
     Route: 048
  10. BUSPAR [Concomitant]
     Indication: ANXIETY
     Dosage: 2 TABLETS (20 MG ) IN THE MORNING AND 2 TABLETS (20 MG ) AT NIGHT
  11. C-PAP MACHINE [Concomitant]
  12. BENTYL [Concomitant]
     Indication: IRRITABLE BOWEL SYNDROME
  13. PLAVIX [Concomitant]
     Indication: ANTICOAGULANT THERAPY
  14. AVAPRO [Concomitant]
     Indication: BLOOD PRESSURE
  15. PHENERGAN HCL [Concomitant]
     Indication: NAUSEA
     Dosage: 25 MG AS NEEDED EVERY EIGHT HOURS

REACTIONS (3)
  - BRADYCARDIA [None]
  - CYST [None]
  - ANKLE FRACTURE [None]
